FAERS Safety Report 4834109-5 (Version None)
Quarter: 2005Q4

REPORT INFORMATION
  Report Type: 
  Country: None (occurrence: None)
  Receive Date: 20051122
  Receipt Date: 20051117
  Transmission Date: 20060501
  Serious: Yes (Hospitalization)
  Sender: FDA-Public Use
  Company Number: US-AVENTIS-200519357US

PATIENT
  Age: 55 Year
  Sex: Female

DRUGS (3)
  1. KETEK [Suspect]
     Dosage: DOSE: NOT PROVIDED
     Dates: start: 20051101
  2. NEURONTIN [Suspect]
     Dosage: DOSE: NOT PROVIDED
  3. ANTIPSYCHOTICS [Suspect]
     Dosage: DOSE: NOT PROVIDED

REACTIONS (1)
  - RHABDOMYOLYSIS [None]
